FAERS Safety Report 25633185 (Version 1)
Quarter: 2025Q3

REPORT INFORMATION
  Report Type: Spontaneous
  Country: GB (occurrence: GB)
  Receive Date: 20250801
  Receipt Date: 20250801
  Transmission Date: 20251020
  Serious: Yes (Other)
  Sender: RANBAXY
  Company Number: GB-SUN PHARMACEUTICAL INDUSTRIES LTD-2025RR-520053

PATIENT
  Age: 55 Year
  Sex: Female
  Weight: 87 kg

DRUGS (4)
  1. SERTRALINE [Suspect]
     Active Substance: SERTRALINE HYDROCHLORIDE
     Indication: Product used for unknown indication
     Dosage: INITIALLY 25 MG DAILY FOR 1 WEEK, THEN INCREASED TO 50 MG DAILY
     Route: 065
  2. SERTRALINE [Suspect]
     Active Substance: SERTRALINE HYDROCHLORIDE
     Dosage: INITIALLY 25 MG DAILY FOR 1 WEEK, THEN INCREASED TO 50 MG DAILY
     Route: 065
     Dates: start: 20250701
  3. AMDINOCILLIN PIVOXIL [Concomitant]
     Active Substance: AMDINOCILLIN PIVOXIL
     Indication: Adverse drug reaction
     Route: 065
     Dates: start: 20250415, end: 20250514
  4. Spikevax JN.1 COVID-19 mRNA Vaccine [Concomitant]
     Indication: Product used for unknown indication
     Route: 030
     Dates: start: 20250426, end: 20250426

REACTIONS (4)
  - Chest discomfort [Unknown]
  - Urticaria [Unknown]
  - Dyspnoea [Unknown]
  - Hypersensitivity [Recovering/Resolving]
